FAERS Safety Report 8909612 (Version 1)
Quarter: 2012Q4

REPORT INFORMATION
  Report Type: Spontaneous
  Country: US (occurrence: None)
  Receive Date: 20121109
  Receipt Date: 20121109
  Transmission Date: 20130627
  Serious: Yes (Other)
  Sender: FDA-Public Use
  Company Number: 2012P1061300

PATIENT
  Age: 67 Year
  Sex: Male
  Weight: 121.56 kg

DRUGS (8)
  1. FENTANYL [Suspect]
     Indication: CHRONIC BACK PAIN
     Dosage: 1 PATCH
     Route: 062
     Dates: start: 201204, end: 201207
  2. FENTANYL [Suspect]
     Indication: CHRONIC BACK PAIN
     Dosage: 1 PATCh
     Route: 062
     Dates: start: 201207, end: 201209
  3. FENTANYL [Suspect]
     Indication: CHRONIC BACK PAIN
     Dosage: 1 PATCH
     Route: 062
     Dates: start: 201209, end: 20011101
  4. FENTANYL [Suspect]
     Indication: CHRONIC BACK PAIN
     Dosage: 1 PATCH
     Route: 062
     Dates: start: 20121101
  5. CORTISONE [Suspect]
     Dates: start: 20121022
  6. POTASSIUM [Concomitant]
  7. LANTUS INSULIM [Concomitant]
  8. APPROXIMATELY 30 UNSPECIFIED MEDICATIONS [Concomitant]

REACTIONS (1)
  - Blood glucose increased [None]
